FAERS Safety Report 4933916-8 (Version None)
Quarter: 2006Q1

REPORT INFORMATION
  Report Type: 
  Country: None (occurrence: None)
  Receive Date: 20060303
  Receipt Date: 20060303
  Transmission Date: 20060701
  Serious: Yes (Hospitalization)
  Sender: FDA-Public Use
  Company Number: 2006000245

PATIENT
  Age: 54 Year
  Sex: Male
  Weight: 67.4 kg

DRUGS (8)
  1. ERLOTINIB HCL (TABLET) [Suspect]
     Indication: GLIOBLASTOMA MULTIFORME
     Dosage: 100 MG (QD), ORAL
     Route: 048
     Dates: start: 20051205, end: 20060101
  2. TEMOZOLOMIDE (TEMOZOLOMIDE) (TABLET) [Suspect]
     Indication: GLIOBLASTOMA MULTIFORME
     Dosage: 100 MG (QD), ORAL
     Route: 048
     Dates: start: 20051205, end: 20051227
  3. DEXAMETHASONE [Concomitant]
  4. ESOMEPRAZOLE (ESOMEPRAZOLE) [Concomitant]
  5. LEXAPRO [Concomitant]
  6. KYTRIL [Concomitant]
  7. LEVAQUIN [Concomitant]
  8. ZYPREXA [Concomitant]

REACTIONS (10)
  - COLOSTOMY [None]
  - DIVERTICULAR PERFORATION [None]
  - ENTEROCOCCAL INFECTION [None]
  - FEBRILE NEUTROPENIA [None]
  - HAEMATOCRIT DECREASED [None]
  - HAEMOGLOBIN DECREASED [None]
  - MENTAL STATUS CHANGES [None]
  - PLATELET COUNT DECREASED [None]
  - PSEUDOMONAS INFECTION [None]
  - RED BLOOD CELL COUNT DECREASED [None]
